FAERS Safety Report 25341686 (Version 1)
Quarter: 2025Q2

REPORT INFORMATION
  Report Type: Spontaneous
  Country: US (occurrence: None)
  Receive Date: 20250520
  Receipt Date: 20250520
  Transmission Date: 20250717
  Serious: Yes (Hospitalization)
  Sender: FDA-CTU
  Company Number: None

PATIENT
  Age: 79 Year
  Sex: Male
  Weight: 71 kg

DRUGS (5)
  1. ENFORTUMAB VEDOTIN-EJFV [Suspect]
     Active Substance: ENFORTUMAB VEDOTIN-EJFV
     Indication: Transitional cell carcinoma
     Route: 041
     Dates: start: 20250331
  2. PEMBROLIZUMAB [Concomitant]
     Active Substance: PEMBROLIZUMAB
     Dates: start: 20250331
  3. fentanyl topical patch 62.5mg [Concomitant]
     Dates: start: 20250328
  4. ROSUVASTATIN [Concomitant]
     Active Substance: ROSUVASTATIN
     Dates: start: 20240307
  5. cefuroxime 50mg [Concomitant]
     Dates: start: 20250430, end: 20250506

REACTIONS (5)
  - Acne [None]
  - Infusion site reaction [None]
  - Cellulitis [None]
  - Extravasation [None]
  - Skin exfoliation [None]

NARRATIVE: CASE EVENT DATE: 20250505
